FAERS Safety Report 10192803 (Version 1)
Quarter: 2014Q2

REPORT INFORMATION
  Report Type: Spontaneous
  Country: GB (occurrence: GB)
  Receive Date: 20140523
  Receipt Date: 20140523
  Transmission Date: 20141212
  Serious: Yes (Other)
  Sender: FDA-Public Use
  Company Number: PHHY2014GB061612

PATIENT
  Age: 62 Year
  Sex: Female
  Weight: 70 kg

DRUGS (12)
  1. KETOCONAZOLE [Suspect]
     Dates: start: 20140429
  2. BENDROFLUMETHIAZIDE [Concomitant]
     Dosage: UNK UKN, UNK
     Dates: start: 20140103, end: 20140430
  3. BETAMETHASONE VALERATE [Concomitant]
     Dosage: UNK UKN, UNK
     Dates: start: 20140428
  4. CHLORPHENAMINE [Concomitant]
     Dosage: UNK UKN, UNK
     Dates: start: 20140428
  5. CLARITHROMYCIN [Concomitant]
     Dosage: UNK UKN, UNK
     Dates: start: 20140213, end: 20140220
  6. CLENIL MODULITE [Concomitant]
     Dosage: UNK UKN, UNK
     Dates: start: 20140103
  7. DERMOL [Concomitant]
     Dosage: UNK UKN, UNK
     Dates: start: 20140428
  8. FLUTICASONE PROPIONATE [Concomitant]
     Dosage: UNK UKN, UNK
     Dates: start: 20140108, end: 20140205
  9. RAMIPRIL [Concomitant]
     Dosage: UNK UKN, UNK
     Dates: start: 20140103, end: 20140430
  10. SALBUTAMOL [Concomitant]
     Dosage: UNK UKN, UNK
     Dates: start: 20140428
  11. SUMATRIPTAN [Concomitant]
     Dosage: UNK UKN, UNK
     Dates: start: 20140428
  12. TRIMOVATE [Concomitant]
     Dosage: UNK UKN, UNK
     Dates: start: 20140429

REACTIONS (1)
  - Urticaria [Recovering/Resolving]
